FAERS Safety Report 4960065-5 (Version None)
Quarter: 2006Q1

REPORT INFORMATION
  Report Type: 
  Country: None (occurrence: None)
  Receive Date: 20060331
  Receipt Date: 20041210
  Transmission Date: 20060701
  Serious: Yes (Hospitalization)
  Sender: FDA-Public Use
  Company Number: US-MERCK-0412USA01369

PATIENT
  Age: 47 Year
  Sex: Male
  Weight: 80 kg

DRUGS (1)
  1. VIOXX [Suspect]
     Indication: PAIN IN EXTREMITY
     Route: 048
     Dates: start: 20020923, end: 20040101

REACTIONS (8)
  - ACUTE MYOCARDIAL INFARCTION [None]
  - CHEST DISCOMFORT [None]
  - CHEST PAIN [None]
  - FATIGUE [None]
  - JOINT INJURY [None]
  - MUSCLE STRAIN [None]
  - NECK PAIN [None]
  - TINNITUS [None]
